FAERS Safety Report 14301541 (Version 4)
Quarter: 2018Q1

REPORT INFORMATION
  Report Type: Spontaneous
  Country: JP (occurrence: JP)
  Receive Date: 20171219
  Receipt Date: 20180305
  Transmission Date: 20180509
  Serious: Yes (Other)
  Sender: FDA-Public Use
  Company Number: PHJP2017JP036613

PATIENT
  Age: 76 Year
  Sex: Male

DRUGS (3)
  1. TEARBALANCE [Suspect]
     Active Substance: HYALURONATE SODIUM
     Indication: DRY EYE
     Dosage: UNK, QID
     Route: 047
     Dates: start: 20161020
  2. TRAVATAN Z [Suspect]
     Active Substance: TRAVOPROST
     Indication: GLAUCOMA
     Dosage: UNK, QD
     Route: 047
     Dates: start: 20170616, end: 20171215
  3. AZOPT [Suspect]
     Active Substance: BRINZOLAMIDE
     Indication: OCULAR HYPERTENSION
     Dosage: UNK, BID
     Route: 047
     Dates: start: 201506

REACTIONS (4)
  - Eye pain [Unknown]
  - Visual acuity reduced [Unknown]
  - Cystoid macular oedema [Unknown]
  - Corneal erosion [Not Recovered/Not Resolved]

NARRATIVE: CASE EVENT DATE: 20171204
